FAERS Safety Report 24772520 (Version 2)
Quarter: 2025Q1

REPORT INFORMATION
  Report Type: Report from Study
  Country: US (occurrence: US)
  Receive Date: 20241224
  Receipt Date: 20250107
  Transmission Date: 20250408
  Serious: Yes (Other)
  Sender: ABBVIE
  Company Number: US-ABBVIE-6058483

PATIENT
  Age: 32 Year
  Sex: Female
  Weight: 100 kg

DRUGS (4)
  1. HUMIRA [Suspect]
     Active Substance: ADALIMUMAB
     Indication: Ankylosing spondylitis
     Dosage: FORM STRENGTH: 40 MG
     Route: 058
     Dates: start: 20240703, end: 20241106
  2. HUMIRA [Suspect]
     Active Substance: ADALIMUMAB
     Indication: Seronegative arthritis
     Dosage: FORM STRENGTH: 40 MG
     Route: 058
     Dates: start: 20250101
  3. FLONASE [Concomitant]
     Active Substance: FLUTICASONE PROPIONATE
     Indication: Multiple allergies
  4. MELATONIN [Concomitant]
     Active Substance: MELATONIN
     Indication: Sleep disorder therapy

REACTIONS (1)
  - Scar [Recovered/Resolved]

NARRATIVE: CASE EVENT DATE: 20240101
